FAERS Safety Report 9373855 (Version 2)
Quarter: 2013Q3

REPORT INFORMATION
  Report Type: Report from Study
  Country: GB (occurrence: GB)
  Receive Date: 20130628
  Receipt Date: 20130901
  Transmission Date: 20140515
  Serious: Yes (Hospitalization)
  Sender: FDA-Public Use
  Company Number: GB-ROCHE-1242365

PATIENT
  Sex: Male
  Weight: 43 kg

DRUGS (2)
  1. RITUXIMAB [Suspect]
     Indication: RHEUMATOID ARTHRITIS
     Route: 065
     Dates: start: 20100324
  2. METHOTREXATE [Concomitant]

REACTIONS (1)
  - Cholecystitis [Recovered/Resolved]
